FAERS Safety Report 8690202 (Version 3)
Quarter: 2012Q4

REPORT INFORMATION
  Report Type: 
  Country: US (occurrence: US)
  Receive Date: 20120727
  Receipt Date: 20120918
  Transmission Date: 20130627
  Serious: No
  Sender: FDA-Public Use
  Company Number: US-ASTRAZENECA-2012SE51565

PATIENT
  Age: 81 Year
  Sex: Male
  Weight: 81.6 kg

DRUGS (9)
  1. SYMBICORT [Suspect]
     Indication: CHRONIC OBSTRUCTIVE PULMONARY DISEASE
     Dosage: SYMBICORT 80/4.5 MCG TWO PUFFS TWICE DAILY
     Route: 055
  2. RENVELA [Concomitant]
     Indication: DIALYSIS
  3. SYNTHROID [Concomitant]
  4. GABAPENTIN [Concomitant]
  5. NEXIUM [Concomitant]
  6. METOPROLOL SUCCINATE [Concomitant]
  7. ITRATROPRIUM-ALBUTEROL [Concomitant]
  8. NEBULIZER AND COMPRESSOR [Concomitant]
  9. MAGNEBIND [Concomitant]

REACTIONS (3)
  - Stress [Unknown]
  - Drug dose omission [Unknown]
  - Off label use [Unknown]
